FAERS Safety Report 8582350-0 (Version None)
Quarter: 2012Q3

REPORT INFORMATION
  Report Type: 
  Country: None (occurrence: None)
  Receive Date: 20120809
  Receipt Date: 20120726
  Transmission Date: 20120928
  Serious: Yes (Hospitalization, Other)
  Sender: FDA-Public Use
  Company Number: PL-ROCHE-1075095

PATIENT
  Sex: Female
  Weight: 35.6 kg

DRUGS (6)
  1. MIRCERA [Suspect]
     Indication: ANAEMIA
     Route: 058
     Dates: start: 20120130
  2. POLPRAZOL [Concomitant]
     Indication: GASTRITIS
     Route: 048
     Dates: start: 20120130
  3. PROPRANOLOL [Concomitant]
     Indication: PALPITATIONS
     Route: 048
     Dates: start: 20000101
  4. ACIDUM FOLICUM [Concomitant]
     Indication: ANAEMIA
     Route: 048
     Dates: start: 20120130
  5. VITAMIN B COMPLEX CAP [Concomitant]
     Indication: ANAEMIA
     Route: 048
     Dates: start: 20120130
  6. ASCORBIC ACID [Concomitant]
     Indication: ANAEMIA
     Route: 048
     Dates: start: 20120130

REACTIONS (4)
  - OVARIAN NEOPLASM [None]
  - HAEMORRHOIDAL HAEMORRHAGE [None]
  - DYSURIA [None]
  - PYELONEPHRITIS CHRONIC [None]
